FAERS Safety Report 5430822-X (Version None)
Quarter: 2007Q3

REPORT INFORMATION
  Report Type: 
  Country: None (occurrence: None)
  Receive Date: 20070830
  Receipt Date: 20061205
  Transmission Date: 20080115
  Serious: No
  Sender: FDA-Public Use
  Company Number: A0630433A

PATIENT
  Sex: Female

DRUGS (1)
  1. WELLBUTRIN XL [Suspect]
     Indication: EMOTIONAL DISORDER
     Dosage: 150MG PER DAY
     Route: 048

REACTIONS (5)
  - ACNE [None]
  - DRY EYE [None]
  - DRY MOUTH [None]
  - DRY SKIN [None]
  - THERAPEUTIC RESPONSE UNEXPECTED [None]
